FAERS Safety Report 24318170 (Version 2)
Quarter: 2024Q4

REPORT INFORMATION
  Report Type: Report from Study
  Country: US (occurrence: US)
  Receive Date: 20240913
  Receipt Date: 20241005
  Transmission Date: 20250115
  Serious: Yes (Hospitalization)
  Sender: BAYER
  Company Number: US-BAYER-2024A127503

PATIENT
  Age: 56 Year
  Sex: Female

DRUGS (1)
  1. STIVARGA [Suspect]
     Active Substance: REGORAFENIB MONOHYDRATE
     Indication: Rectal cancer
     Dosage: 80 MG, QD
     Route: 048
     Dates: start: 202408, end: 20240903

REACTIONS (9)
  - Urinary tract infection [Unknown]
  - Pyrexia [Unknown]
  - Tenderness [Recovered/Resolved]
  - Rash [None]
  - Colitis [None]
  - Decreased appetite [Unknown]
  - Insomnia [Unknown]
  - Fatigue [Unknown]
  - Off label use [None]

NARRATIVE: CASE EVENT DATE: 20240905
